FAERS Safety Report 10211359 (Version 1)
Quarter: 2014Q2

REPORT INFORMATION
  Report Type: Spontaneous
  Country: NL (occurrence: NL)
  Receive Date: 20140602
  Receipt Date: 20140602
  Transmission Date: 20141212
  Serious: Yes (Hospitalization)
  Sender: FDA-Public Use
  Company Number: NL-ABBVIE-14P-114-1243480-00

PATIENT
  Age: 56 Year
  Sex: Male
  Weight: 77 kg

DRUGS (2)
  1. CREON FORTE CAPSULE MSR [Suspect]
     Indication: PANCREATIC DISORDER
     Route: 048
     Dates: start: 20131101, end: 20131120
  2. OMEPRAZOL [Concomitant]
     Indication: PRODUCT USED FOR UNKNOWN INDICATION
     Route: 048
     Dates: start: 20131101

REACTIONS (1)
  - Gastrointestinal haemorrhage [Recovered/Resolved]
